FAERS Safety Report 24117024 (Version 1)
Quarter: 2024Q3

REPORT INFORMATION
  Report Type: Report from Study
  Country: US (occurrence: None)
  Receive Date: 20240722
  Receipt Date: 20240722
  Transmission Date: 20241017
  Serious: Yes (Other)
  Sender: ASTRAZENECA
  Company Number: 2023A252814

PATIENT
  Sex: Male
  Weight: 103.9 kg

DRUGS (1)
  1. KOSELUGO [Suspect]
     Active Substance: SELUMETINIB
     Indication: Neoplasm
     Route: 048
     Dates: start: 20200518

REACTIONS (2)
  - Nephrolithiasis [Unknown]
  - Product dose omission in error [Unknown]
